FAERS Safety Report 4321970-6 (Version None)
Quarter: 2004Q1

REPORT INFORMATION
  Report Type: 
  Country: None (occurrence: None)
  Receive Date: 20040323
  Receipt Date: 20040311
  Transmission Date: 20041129
  Serious: Yes (Death, Hospitalization)
  Sender: FDA-Public Use
  Company Number: FR-BRISTOL-MYERS SQUIBB COMPANY-12533873

PATIENT
  Age: 66 Year
  Sex: Female

DRUGS (11)
  1. GLUCOPHAGE [Suspect]
     Indication: DIABETES MELLITUS NON-INSULIN-DEPENDENT
     Route: 048
     Dates: end: 20040104
  2. BACTRIM [Suspect]
     Indication: STAPHYLOCOCCAL INFECTION
     Dates: start: 20040102, end: 20040104
  3. DIAMICRON [Suspect]
     Indication: DIABETES MELLITUS NON-INSULIN-DEPENDENT
     Route: 048
     Dates: start: 20040102, end: 20040104
  4. PYOSTACINE [Suspect]
     Indication: STAPHYLOCOCCAL INFECTION
     Dates: start: 20031223, end: 20040102
  5. OFLOCET [Suspect]
     Indication: STAPHYLOCOCCAL INFECTION
     Route: 048
     Dates: end: 20040104
  6. DAONIL [Suspect]
     Indication: DIABETES MELLITUS NON-INSULIN-DEPENDENT
     Route: 048
     Dates: start: 20031223, end: 20040102
  7. TAREG [Suspect]
     Dates: end: 20040104
  8. ACTRAPID [Concomitant]
  9. FUNGIZONE [Concomitant]
     Dates: end: 20040104
  10. PRIMPERAN INJ [Concomitant]
     Dates: end: 20040104
  11. ROCEPHIN [Concomitant]

REACTIONS (16)
  - CARDIAC ARREST [None]
  - CYTOLYTIC HEPATITIS [None]
  - DEHYDRATION [None]
  - DIABETES MELLITUS INADEQUATE CONTROL [None]
  - DIARRHOEA [None]
  - GLOMERULONEPHRITIS [None]
  - HEPATIC FAILURE [None]
  - HIP ARTHROPLASTY [None]
  - INFLAMMATION [None]
  - LACTIC ACIDOSIS [None]
  - LEUKOCYTOSIS [None]
  - LOSS OF CONSCIOUSNESS [None]
  - METABOLIC ACIDOSIS [None]
  - RENAL FAILURE ACUTE [None]
  - STAPHYLOCOCCAL INFECTION [None]
  - VOMITING [None]
